FAERS Safety Report 23855496 (Version 2)
Quarter: 2024Q2

REPORT INFORMATION
  Report Type: Report from Study
  Country: KR (occurrence: KR)
  Receive Date: 20240514
  Receipt Date: 20240612
  Transmission Date: 20240716
  Serious: Yes (Other)
  Sender: FDA-Public Use
  Company Number: KR-002147023-NVSC2024KR099607

PATIENT
  Age: 81 Year
  Sex: Female

DRUGS (14)
  1. KISQALI [Suspect]
     Active Substance: RIBOCICLIB
     Indication: Hormone receptor positive HER2 negative breast cancer
     Dosage: 600 MG, QD
     Route: 048
     Dates: start: 20230529, end: 20230619
  2. KISQALI [Suspect]
     Active Substance: RIBOCICLIB
     Dosage: 400 MG, QD
     Route: 048
     Dates: start: 20230626, end: 20230717
  3. KISQALI [Suspect]
     Active Substance: RIBOCICLIB
     Dosage: 400 MG, QD
     Route: 048
     Dates: start: 20230724, end: 20230814
  4. KISQALI [Suspect]
     Active Substance: RIBOCICLIB
     Dosage: 400 MG, QD (LAST DOSE ON 11 SEP 2023)
     Route: 048
     Dates: start: 20230821
  5. RAMIPRIL [Concomitant]
     Active Substance: RAMIPRIL
     Indication: Hypertension
     Dosage: 5 MG, QD
     Route: 048
     Dates: start: 2010
  6. RAMIPRIL [Concomitant]
     Active Substance: RAMIPRIL
     Dosage: 5 MG, QD
     Route: 048
     Dates: start: 20140408
  7. ALDACTONE [Concomitant]
     Active Substance: SPIRONOLACTONE
     Indication: Hypertension
     Dosage: 12.5 MG, QD
     Route: 048
     Dates: start: 2010
  8. MOLSITON [Concomitant]
     Indication: Myocardial ischaemia
     Dosage: 4 MG, QD
     Route: 048
     Dates: start: 20140408
  9. MAXNOPHEN [Concomitant]
     Indication: Arthralgia
     Dosage: 4 DOSAGE FORM, QD
     Route: 048
     Dates: start: 20200525
  10. NEURONTIN [Concomitant]
     Active Substance: GABAPENTIN
     Indication: Arthralgia
     Dosage: 300 MG, QD
     Route: 048
     Dates: start: 20180516
  11. FURIX [Concomitant]
     Indication: Myocardial ischaemia
     Dosage: 20 MG, QD
     Route: 048
     Dates: start: 20140915
  12. DICAMAX [Concomitant]
     Indication: Prophylaxis
     Dosage: 1 DOSAGE FORM, QD
     Route: 048
     Dates: start: 20140618
  13. FEMARA [Concomitant]
     Active Substance: LETROZOLE
     Indication: Breast cancer
     Dosage: 2.5 MG, QD
     Route: 048
     Dates: start: 20230529
  14. PROLIA [Concomitant]
     Active Substance: DENOSUMAB
     Indication: Prophylaxis
     Dosage: 60 MG, QD
     Route: 058
     Dates: start: 20230529, end: 20230529

REACTIONS (10)
  - Electrocardiogram QT prolonged [Not Recovered/Not Resolved]
  - Electrocardiogram abnormal [Recovering/Resolving]
  - White blood cell count decreased [Recovered/Resolved]
  - White blood cell count decreased [Recovering/Resolving]
  - Platelet distribution width decreased [Recovering/Resolving]
  - Haemoglobin decreased [Recovering/Resolving]
  - Decreased appetite [Not Recovered/Not Resolved]
  - Insomnia [Not Recovered/Not Resolved]
  - Alopecia [Recovering/Resolving]
  - Pruritus [Recovered/Resolved]

NARRATIVE: CASE EVENT DATE: 20230612
